FAERS Safety Report 12550587 (Version 1)
Quarter: 2016Q3

REPORT INFORMATION
  Report Type: Spontaneous
  Country: US (occurrence: US)
  Receive Date: 20160712
  Receipt Date: 20160712
  Transmission Date: 20161109
  Serious: Yes (Other)
  Sender: FDA-Public Use
  Company Number: US-PFIZER INC-2016333857

PATIENT
  Age: 61 Year
  Sex: Female
  Weight: 61 kg

DRUGS (2)
  1. AMOXICILLIN. [Concomitant]
     Active Substance: AMOXICILLIN
     Indication: TOOTH INFECTION
     Dosage: UNK
     Dates: start: 201606, end: 201606
  2. EPANUTIN [Suspect]
     Active Substance: PHENYTOIN SODIUM
     Dosage: 100 MG, 3X/DAY
     Route: 048

REACTIONS (6)
  - Anticonvulsant drug level increased [Unknown]
  - Seizure [Unknown]
  - Poor quality drug administered [Unknown]
  - Suspected counterfeit product [Unknown]
  - Condition aggravated [Unknown]
  - Product quality issue [Unknown]

NARRATIVE: CASE EVENT DATE: 201605
